FAERS Safety Report 20122805 (Version 1)
Quarter: 2021Q4

REPORT INFORMATION
  Report Type: Spontaneous
  Country: GB (occurrence: GB)
  Receive Date: 20211129
  Receipt Date: 20211129
  Transmission Date: 20220303
  Serious: Yes (Hospitalization, Other)
  Sender: FDA-Public Use
  Company Number: GB-SUN PHARMACEUTICAL INDUSTRIES LTD-2021RR-319060

PATIENT
  Age: 37 Year
  Sex: Male

DRUGS (5)
  1. EPINEPHRINE [Interacting]
     Active Substance: EPINEPHRINE
     Indication: Product used for unknown indication
     Dosage: 500 MICROGRAM IN DIVIDED BOLUSES
     Route: 040
  2. EPINEPHRINE [Interacting]
     Active Substance: EPINEPHRINE
     Dosage: 0.19 UG/KG/MIN
     Route: 065
  3. CLOZAPINE [Interacting]
     Active Substance: CLOZAPINE
     Indication: Schizophrenia
     Dosage: 900 MILLIGRAM, DAILY (200 MG AT 08:00 AND 700 MG AT 20:00)
     Route: 065
     Dates: start: 2009
  4. NOREPINEPHRINE [Concomitant]
     Active Substance: NOREPINEPHRINE
     Indication: Product used for unknown indication
     Dosage: MAXIMUM DOSES OF 4.3 UG/KG/MIN
     Route: 065
  5. VASOPRESSIN [Concomitant]
     Active Substance: VASOPRESSIN
     Indication: Product used for unknown indication
     Dosage: 5 UNITS/HOUR
     Route: 065

REACTIONS (4)
  - Intestinal pseudo-obstruction [Recovered/Resolved]
  - Hypotension [Unknown]
  - Drug interaction [Unknown]
  - Vasoplegia syndrome [Unknown]
